FAERS Safety Report 17344994 (Version 2)
Quarter: 2021Q1

REPORT INFORMATION
  Report Type: Spontaneous
  Country: US (occurrence: US)
  Receive Date: 20200129
  Receipt Date: 20210203
  Transmission Date: 20210419
  Serious: No
  Sender: FDA-Public Use
  Company Number: US-ALLERGAN-1950489US

PATIENT
  Age: 47 Year
  Sex: Female
  Weight: 63.49 kg

DRUGS (14)
  1. CAT^S CLAW [Concomitant]
     Active Substance: CAT^S CLAW
  2. MULTIVITAMINS [Concomitant]
     Active Substance: VITAMINS
  3. VITAMIN D NOS [Concomitant]
     Active Substance: VITAMIN D NOS
  4. BOTOX COSMETIC [Suspect]
     Active Substance: ONABOTULINUMTOXINA
     Indication: SKIN WRINKLING
     Dosage: 2 UNITS, SINGLE
     Dates: start: 20191126, end: 20191126
  5. JUVEDERM [Concomitant]
     Active Substance: HYALURONIC ACID
     Dosage: UNK, SINGLE
     Dates: start: 2009, end: 2009
  6. CLINDAMYCIN. [Concomitant]
     Active Substance: CLINDAMYCIN
  7. FISH OIL [Concomitant]
     Active Substance: FISH OIL
  8. BOTOX COSMETIC [Suspect]
     Active Substance: ONABOTULINUMTOXINA
     Indication: SKIN WRINKLING
     Dosage: 20 UNITS, SINGLE
     Dates: start: 20191126, end: 20191126
  9. BOTOX COSMETIC [Suspect]
     Active Substance: ONABOTULINUMTOXINA
     Dosage: 3 UNITS, SINGLE
     Dates: start: 20191126, end: 20191126
  10. LORAZEPAM. [Concomitant]
     Active Substance: LORAZEPAM
  11. DIFFERIN [Concomitant]
     Active Substance: ADAPALENE
  12. XEOMIN [Concomitant]
     Active Substance: INCOBOTULINUMTOXINA
     Dosage: 20 UNITS, SINGLE
     Dates: start: 2017, end: 2017
  13. JUVEDERM [Concomitant]
     Active Substance: HYALURONIC ACID
     Dosage: UNK, SINGLE
     Dates: start: 20190224, end: 20190224
  14. COENZYME Q10 [Concomitant]
     Active Substance: DIETARY SUPPLEMENT\UBIDECARENONE

REACTIONS (3)
  - Drug ineffective [Unknown]
  - Drug ineffective for unapproved indication [Unknown]
  - Off label use [Unknown]

NARRATIVE: CASE EVENT DATE: 20191124
